FAERS Safety Report 26019766 (Version 1)
Quarter: 2025Q4

REPORT INFORMATION
  Report Type: Spontaneous
  Country: US (occurrence: US)
  Receive Date: 20251110
  Receipt Date: 20251110
  Transmission Date: 20260117
  Serious: No
  Sender: GALPHARM INTERNATIONAL
  Company Number: US-PERRIGO-24US010445

PATIENT
  Age: 81 Year
  Sex: Female
  Weight: 64.399 kg

DRUGS (7)
  1. POLYETHYLENE GLYCOL 3350 [Suspect]
     Active Substance: POLYETHYLENE GLYCOL 3350
     Indication: Constipation
     Dosage: 8.5 G-17 G, QD
     Route: 048
     Dates: start: 202311, end: 20241105
  2. SYNTHROID [Concomitant]
     Active Substance: LEVOTHYROXINE SODIUM
     Indication: Thyroid disorder
     Dosage: UNKNOWN, UNKNOWN
     Route: 065
     Dates: start: 1974
  3. ENALAPRIL [Concomitant]
     Active Substance: ENALAPRIL
     Indication: Renal disorder prophylaxis
     Dosage: UNKNOWN, UNKNOWN
     Route: 065
     Dates: start: 1974
  4. NORTRIPTYLINE [Concomitant]
     Active Substance: NORTRIPTYLINE
     Indication: Head discomfort
     Dosage: UNKNOWN, UNKNOWN
     Route: 065
     Dates: start: 1985
  5. INSULIN ASPART [Concomitant]
     Active Substance: INSULIN ASPART
     Indication: Type 1 diabetes mellitus
     Dosage: UNKNOWN, UNKNOWN
     Route: 065
     Dates: start: 1989
  6. BACTRIM DS [Concomitant]
     Active Substance: SULFAMETHOXAZOLE\TRIMETHOPRIM
     Indication: Urinary tract infection
     Dosage: UNKNOWN, UNKNOWN
     Route: 065
     Dates: start: 20241014, end: 20241024
  7. KEFLEX [Concomitant]
     Active Substance: CEPHALEXIN
     Indication: Urinary tract infection
     Dosage: UNKNOWN, UNKNOWN
     Route: 065
     Dates: start: 20240901, end: 20240908

REACTIONS (4)
  - Faeces soft [Not Recovered/Not Resolved]
  - Abdominal pain upper [Not Recovered/Not Resolved]
  - Incorrect product administration duration [Unknown]
  - Underdose [Unknown]

NARRATIVE: CASE EVENT DATE: 20231101
